FAERS Safety Report 6932052-9 (Version None)
Quarter: 2010Q3

REPORT INFORMATION
  Report Type: 
  Country: None (occurrence: None)
  Receive Date: 20100819
  Receipt Date: 20100816
  Transmission Date: 20110219
  Serious: Yes (Life-Threatening, Other)
  Sender: FDA-Public Use
  Company Number: CN-ASTRAZENECA-2010SE37159

PATIENT
  Age: 45 Year
  Sex: Female
  Weight: 60 kg

DRUGS (14)
  1. PROPOFOL [Suspect]
     Indication: ANAESTHESIA
     Route: 058
  2. PROPOFOL [Suspect]
     Route: 042
  3. FENTANYL [Suspect]
     Indication: ANAESTHESIA
     Route: 058
  4. FENTANYL [Suspect]
     Route: 042
  5. FENTANYL [Suspect]
     Dosage: INTERMITTENT BOLUS INJECTION
     Route: 042
  6. MIDAZOLAM HCL [Suspect]
     Indication: ANAESTHESIA
     Route: 058
  7. MIDAZOLAM HCL [Suspect]
     Route: 042
  8. VECURONIUM BROMIDE [Suspect]
     Indication: ANAESTHESIA
     Route: 058
  9. VECURONIUM BROMIDE [Suspect]
     Route: 042
  10. VECURONIUM BROMIDE [Suspect]
     Dosage: INTERMITTENT BOLUS INJECTION
     Route: 042
  11. ISOFLURANE [Suspect]
     Indication: ANAESTHESIA
     Dosage: 1-2 PERCENT
  12. COMPOUND SODIUM LACTATE [Concomitant]
  13. OXYGEN [Concomitant]
  14. METRONIDAZOLE [Concomitant]

REACTIONS (3)
  - CARDIO-RESPIRATORY ARREST [None]
  - INCORRECT ROUTE OF DRUG ADMINISTRATION [None]
  - LOSS OF CONSCIOUSNESS [None]
